FAERS Safety Report 18479739 (Version 1)
Quarter: 2020Q4

REPORT INFORMATION
  Report Type: Report from Study
  Country: FR (occurrence: FR)
  Receive Date: 20201109
  Receipt Date: 20201109
  Transmission Date: 20210114
  Serious: Yes (Other)
  Sender: FDA-Public Use
  Company Number: FR-PFIZER INC-2020430899

PATIENT
  Sex: Male

DRUGS (4)
  1. DACARBAZINE. [Suspect]
     Active Substance: DACARBAZINE
     Indication: HODGKIN^S DISEASE
     Dosage: 250 MG/M2, CYCLIC, (THREE CYCLES, REPEATED EVERY 28 DAYS)
     Route: 042
  2. VINDESINE SULFATE [Suspect]
     Active Substance: VINDESINE SULFATE
     Indication: HODGKIN^S DISEASE
     Dosage: 2 MG/M2, CYCLIC, (THREE CYCLES, REPEATED EVERY 28 DAYS)
     Route: 042
  3. BLEOMYCIN [Suspect]
     Active Substance: BLEOMYCIN SULFATE
     Indication: HODGKIN^S DISEASE
     Dosage: 10 MG, CYCLIC, (THREE CYCLES, REPEATED EVERY 28 DAYS)
     Route: 042
  4. DOXORUBICIN HCL [Suspect]
     Active Substance: DOXORUBICIN HYDROCHLORIDE
     Indication: HODGKIN^S DISEASE
     Dosage: 25 MG/M2, CYCLIC,  (THREE CYCLES, REPEATED EVERY 28 DAYS)
     Route: 042

REACTIONS (1)
  - Myocardial infarction [Unknown]
